FAERS Safety Report 8192279-8 (Version None)
Quarter: 2012Q1

REPORT INFORMATION
  Report Type: 
  Country: None (occurrence: None)
  Receive Date: 20120307
  Receipt Date: 20120301
  Transmission Date: 20120608
  Serious: Yes (Hospitalization, Other)
  Sender: FDA-Public Use
  Company Number: JP-VERTEX PHARMACEUTICALS INC.-AE-2012-002913

PATIENT
  Age: 57 Year
  Sex: Male

DRUGS (8)
  1. GLYCYRON [Concomitant]
     Route: 048
  2. PEG-INTRON [Concomitant]
     Indication: HEPATITIS C
     Route: 058
     Dates: start: 20120217, end: 20120227
  3. LOXONIN [Concomitant]
     Route: 048
     Dates: start: 20120217, end: 20120217
  4. RIBAVIRIN [Concomitant]
     Indication: HEPATITIS C
     Route: 048
     Dates: start: 20120217, end: 20120227
  5. ATELEC [Concomitant]
     Route: 048
  6. TELAVIC (TELAPREVIR) [Suspect]
     Indication: HEPATITIS C
     Route: 048
     Dates: start: 20120217, end: 20120227
  7. CANDESARTAN CILEXETIL [Concomitant]
     Route: 048
  8. MUCOSTA [Concomitant]
     Route: 048
     Dates: start: 20120218

REACTIONS (5)
  - DECREASED APPETITE [None]
  - ASTHENIA [None]
  - RENAL IMPAIRMENT [None]
  - DRUG ERUPTION [None]
  - PLATELET COUNT DECREASED [None]
